FAERS Safety Report 9227925 (Version 2)
Quarter: 2013Q2

REPORT INFORMATION
  Report Type: Spontaneous
  Country: JP (occurrence: JP)
  Receive Date: 20130412
  Receipt Date: 20130507
  Transmission Date: 20140414
  Serious: Yes (Hospitalization)
  Sender: FDA-Public Use
  Company Number: JP-PFIZER INC-2013114894

PATIENT
  Age: 43 Year
  Sex: Male

DRUGS (7)
  1. CHAMPIX [Suspect]
     Indication: SMOKING CESSATION THERAPY
     Dosage: UNK
     Route: 048
     Dates: start: 201303
  2. WARFARIN [Concomitant]
     Dosage: UNK
  3. HEPARIN [Concomitant]
     Dosage: UNK
  4. LOXONIN [Concomitant]
     Dosage: UNK
  5. REBAMIPIDE [Concomitant]
     Dosage: UNK
  6. VOLTAREN [Concomitant]
     Dosage: UNK
     Route: 054
  7. URONASE [Concomitant]
     Dosage: UNK

REACTIONS (1)
  - Peripheral embolism [Unknown]
